FAERS Safety Report 9866949 (Version 1)
Quarter: 2014Q1

REPORT INFORMATION
  Report Type: Spontaneous
  Country: US (occurrence: None)
  Receive Date: 20140203
  Receipt Date: 20140203
  Transmission Date: 20141002
  Serious: Yes (Other)
  Sender: FDA-Public Use
  Company Number: None

PATIENT
  Age: 23 Year
  Sex: Female
  Weight: 102.51 kg

DRUGS (1)
  1. NUVA RING [Suspect]
     Indication: CONTRACEPTION
     Route: 067
     Dates: start: 201312, end: 201401

REACTIONS (2)
  - Pelvic pain [None]
  - Arthralgia [None]
